FAERS Safety Report 7833147-8 (Version None)
Quarter: 2011Q4

REPORT INFORMATION
  Report Type: 
  Country: None (occurrence: None)
  Receive Date: 20111024
  Receipt Date: 20111011
  Transmission Date: 20120403
  Serious: No
  Sender: FDA-Public Use
  Company Number: US-JNJFOC-20110807006

PATIENT
  Age: 25 Year
  Sex: Female
  Weight: 136.08 kg

DRUGS (1)
  1. INVEGA SUSTENNA [Suspect]
     Indication: PRODUCT USED FOR UNKNOWN INDICATION
     Route: 030
     Dates: start: 20110714, end: 20110801

REACTIONS (2)
  - GALACTORRHOEA [None]
  - BLOOD PROLACTIN ABNORMAL [None]
